FAERS Safety Report 9813347 (Version 1)
Quarter: 2014Q1

REPORT INFORMATION
  Report Type: Spontaneous
  Country: US (occurrence: US)
  Receive Date: 20140113
  Receipt Date: 20140113
  Transmission Date: 20141002
  Serious: Yes (Other)
  Sender: FDA-Public Use
  Company Number: US-UCBSA-107919

PATIENT
  Age: 43 Year
  Sex: Male
  Weight: 88.45 kg

DRUGS (6)
  1. CIMZIA [Suspect]
     Indication: CROHN^S DISEASE
     Dosage: UNKNOWN DOSE
     Dates: start: 201302, end: 201305
  2. HUMIRA [Suspect]
     Indication: CROHN^S DISEASE
     Dosage: 40 MG
     Dates: start: 2007, end: 201301
  3. HUMIRA [Suspect]
     Indication: ARTHRITIS ENTEROPATHIC
     Dosage: 40 MG
     Dates: start: 2007, end: 201301
  4. HUMIRA [Suspect]
     Indication: CROHN^S DISEASE
     Dates: start: 20131209, end: 20131209
  5. HUMIRA [Suspect]
     Indication: ARTHRITIS ENTEROPATHIC
     Dates: start: 20131209, end: 20131209
  6. CLARITIN [Concomitant]
     Indication: HYPERSENSITIVITY
     Dosage: UNKNOWN DOSE

REACTIONS (4)
  - Herpes zoster [Recovered/Resolved]
  - Ulcer [Unknown]
  - Crohn^s disease [Recovered/Resolved]
  - Drug hypersensitivity [Unknown]
